FAERS Safety Report 19507380 (Version 1)
Quarter: 2021Q3

REPORT INFORMATION
  Report Type: Spontaneous
  Country: DE (occurrence: DE)
  Receive Date: 20210708
  Receipt Date: 20210708
  Transmission Date: 20211014
  Serious: Yes (Hospitalization, Other)
  Sender: FDA-Public Use
  Company Number: DE-TEVA-2021-DE-1929556

PATIENT
  Age: 79 Year
  Sex: Female
  Weight: 100 kg

DRUGS (11)
  1. SPIRONOLACTONE. [Concomitant]
     Active Substance: SPIRONOLACTONE
     Dosage: .5 DOSAGE FORMS DAILY; 50 MG, 0.5?0?0?0,
     Route: 048
  2. OPIPRAMOL [Suspect]
     Active Substance: OPIPRAMOL
     Dosage: 50 MILLIGRAM DAILY;   0?0?1?0,
     Route: 048
  3. ACETYLSALICYLIC ACID [Concomitant]
     Active Substance: ASPIRIN
     Dosage: 100 MILLIGRAM DAILY;  1?0?0?0,
     Route: 048
  4. LEVOTHYROXINE SODIUM. [Concomitant]
     Active Substance: LEVOTHYROXINE SODIUM
     Dosage: 125 MICROGRAM DAILY;   1?0?0?0,
     Route: 048
  5. METAMIZOLE [Concomitant]
     Active Substance: METAMIZOLE
     Dosage: 1000 MILLIGRAM DAILY;  1?0?1?0,
     Route: 048
  6. RAMIPRIL. [Concomitant]
     Active Substance: RAMIPRIL
     Dosage: 10 MILLIGRAM DAILY;   1?0?0?0,
     Route: 048
  7. PREGABALIN. [Suspect]
     Active Substance: PREGABALIN
     Dosage: 200 MILLIGRAM DAILY;   1?0?1?0,
     Route: 048
  8. OMEPRAZOL [Concomitant]
     Active Substance: OMEPRAZOLE
     Dosage: 20 MILLIGRAM DAILY;  1?0?0?0,
     Route: 048
  9. TORASEMID [Concomitant]
     Active Substance: TORSEMIDE
     Dosage: 4 DOSAGE FORMS DAILY; 10 MG, 2?2?0?0,
     Route: 048
  10. ATORVASTATIN [Concomitant]
     Active Substance: ATORVASTATIN
     Dosage: 40 MILLIGRAM DAILY;   0?0?1?0,
     Route: 048
  11. FLUTICASONFUROATVILANTEROL [Concomitant]
     Dosage: 1 DOSAGE FORMS DAILY; 100 | 25 UG, 1?0?0?0,
     Route: 055

REACTIONS (3)
  - Angina pectoris [Unknown]
  - Palpitations [Unknown]
  - Atrial fibrillation [Unknown]
